FAERS Safety Report 19772774 (Version 1)
Quarter: 2021Q3

REPORT INFORMATION
  Report Type: Spontaneous
  Country: DE (occurrence: DE)
  Receive Date: 20210831
  Receipt Date: 20210831
  Transmission Date: 20211014
  Serious: Yes (Life-Threatening, Hospitalization, Other)
  Sender: FDA-Public Use
  Company Number: DE-AMGEN-DEUSP2020214281

PATIENT
  Age: 40 Year
  Sex: Female
  Weight: 100 kg

DRUGS (107)
  1. VALSARTAN 1A PHARMA [Suspect]
     Active Substance: VALSARTAN
     Indication: HYPERTENSION
     Dosage: UNK
     Route: 065
     Dates: start: 201407
  2. VALSARTAN 1A PHARMA [Suspect]
     Active Substance: VALSARTAN
     Dosage: 80 MILLIGRAM (160/ 12.5 MG)
     Route: 065
     Dates: start: 201407, end: 201807
  3. VALSARTAN 1A PHARMA [Suspect]
     Active Substance: VALSARTAN
     Dosage: UNK
     Route: 065
     Dates: start: 20170112
  4. BACLOFEN. [Suspect]
     Active Substance: BACLOFEN
     Dosage: 25 MG (1?1?1?1 ONCE IN MORNING, NOON, AFTERNOON, EVENING)
     Route: 048
     Dates: start: 20180102
  5. VALSARTAN HEXAL COMP [Suspect]
     Active Substance: HYDROCHLOROTHIAZIDE\VALSARTAN
     Dosage: UNK
     Route: 065
     Dates: start: 20150611
  6. DOXORUBICINE [DOXORUBICIN] [Suspect]
     Active Substance: DOXORUBICIN
     Indication: HODGKIN^S DISEASE
     Dosage: 25 MILLIGRAM/SQ. METER (DAY 1 AND DAY 15)
     Route: 065
     Dates: start: 20151027, end: 201512
  7. LYRICA [Concomitant]
     Active Substance: PREGABALIN
     Dosage: 150 UNK, QD (1X 150, 1X)
     Route: 065
     Dates: start: 2016
  8. CLONIDINE. [Concomitant]
     Active Substance: CLONIDINE
     Indication: PRODUCT USED FOR UNKNOWN INDICATION
     Dosage: 0.15 MICROGRAM, BID (1?0?1 IN MORNINGA AND EVENING))
     Route: 065
  9. VIGANTOLETTEN [Concomitant]
     Active Substance: CHOLECALCIFEROL
     Indication: PRODUCT USED FOR UNKNOWN INDICATION
     Dosage: 100 MILLIGRAM, QD (IN THE MORNING)
     Route: 048
  10. BLEOMYCIN [Suspect]
     Active Substance: BLEOMYCIN SULFATE
     Indication: HODGKIN^S DISEASE
     Dosage: 25 MILLIGRAM/SQ. METER (DAY 1 AND DAY 15)
     Route: 065
     Dates: start: 20151027, end: 201512
  11. BLEOMYCIN [Suspect]
     Active Substance: BLEOMYCIN SULFATE
     Dosage: 10 MG/M2, DAY 8
     Route: 065
     Dates: start: 20160120
  12. PREDNISOLONE. [Suspect]
     Active Substance: PREDNISOLONE
     Indication: HODGKIN^S DISEASE
     Dosage: 40 MILLIGRAM/SQ. METER (40 MG MG/M2 (80 MG), DAY 1 ? 14, DAILY)
     Route: 065
     Dates: start: 20160113, end: 20160126
  13. VALSARTAN 1A PHARMA [Suspect]
     Active Substance: VALSARTAN
     Dosage: UNK
     Route: 065
     Dates: start: 20150611
  14. VALSARTAN 1A PHARMA [Suspect]
     Active Substance: VALSARTAN
     Dosage: UNK
     Route: 065
     Dates: start: 20160804
  15. DICLOFENAC [Suspect]
     Active Substance: DICLOFENAC
     Indication: PRODUCT USED FOR UNKNOWN INDICATION
     Dosage: UNK
     Route: 065
  16. GRANOCYTE [Suspect]
     Active Substance: LENOGRASTIM
     Dosage: 34 UNK, QD (1X 34, QD, 1X DAILY)
     Route: 065
     Dates: start: 20160120, end: 201601
  17. PARACETAMOL [Suspect]
     Active Substance: ACETAMINOPHEN
     Indication: PRODUCT USED FOR UNKNOWN INDICATION
     Route: 065
  18. LYRICA [Concomitant]
     Active Substance: PREGABALIN
     Indication: PRODUCT USED FOR UNKNOWN INDICATION
     Dosage: 150 UNK, QD (2X 75, 1X DAILY (MORNING))
     Route: 065
     Dates: start: 2016
  19. MOTILIUM [Concomitant]
     Active Substance: DOMPERIDONE
     Indication: PRODUCT USED FOR UNKNOWN INDICATION
     Dosage: 1 DOSAGE FORM, QID (1 DF,SACHET, 4X DAILY)
     Route: 065
  20. COTRIMOXAZOL [Concomitant]
     Active Substance: SULFAMETHOXAZOLE\TRIMETHOPRIM
     Indication: PNEUMONIA
     Dosage: 1 DOSAGE FORM, BID (ON (SATURDAY AND SUNDAY)
  21. VALSARTAN 1A PHARMA [Suspect]
     Active Substance: VALSARTAN
     Dosage: 80 MILLIGRAM
     Route: 065
     Dates: start: 20140707
  22. VALSARTAN 1A PHARMA [Suspect]
     Active Substance: VALSARTAN
     Dosage: UNK
     Route: 065
     Dates: start: 20150102
  23. VALSARTAN 1A PHARMA [Suspect]
     Active Substance: VALSARTAN
     Dosage: UNK
     Route: 065
     Dates: start: 20160427
  24. BACLOFEN. [Suspect]
     Active Substance: BACLOFEN
     Dosage: 50 MICROGRAM, QD, VIA PUMP
     Route: 065
     Dates: start: 2015, end: 2015
  25. BACLOFEN. [Suspect]
     Active Substance: BACLOFEN
     Dosage: UNK (125 UG/24 HOURS 2000 UG/ML VIA PUMP)
     Route: 065
     Dates: start: 20180228
  26. VALSARTAN HEXAL COMP [Suspect]
     Active Substance: HYDROCHLOROTHIAZIDE\VALSARTAN
     Dosage: UNK
     Route: 065
     Dates: start: 20150102
  27. VALSARTAN HEXAL COMP [Suspect]
     Active Substance: HYDROCHLOROTHIAZIDE\VALSARTAN
     Dosage: UNK
     Route: 065
     Dates: start: 20160804
  28. DACARBAZINE. [Suspect]
     Active Substance: DACARBAZINE
     Indication: HODGKIN^S DISEASE
     Dosage: 375 MILLIGRAM/SQ. METER (DAY 1 AND DAY 15)
     Route: 065
     Dates: start: 20151027, end: 201512
  29. MOTILIUM [Concomitant]
     Active Substance: DOMPERIDONE
     Dosage: 1 DOSAGE FORM, QID (1 DF,SACHET, 4X DAILY)
     Route: 065
  30. COTRIMOX FORTE [Concomitant]
     Active Substance: SULFAMETHOXAZOLE\TRIMETHOPRIM
     Indication: PROPHYLAXIS
     Dosage: 1 DOSAGE FORM, BID (ON (SATURDAY AND SUNDAY))
     Route: 065
  31. MOVICOL [Concomitant]
     Active Substance: POLYETHYLENE GLYCOL 3350\POTASSIUM CHLORIDE\SODIUM BICARBONATE\SODIUM CHLORIDE
     Indication: PRODUCT USED FOR UNKNOWN INDICATION
     Dosage: UNK, SACHET, 1X DAILY (MORNING)
     Route: 065
  32. CLEXANE [Concomitant]
     Active Substance: ENOXAPARIN SODIUM
     Indication: PROPHYLAXIS
     Dosage: 40 MILLIGRAM, QD
     Route: 058
  33. VALSARTAN 1A PHARMA [Suspect]
     Active Substance: VALSARTAN
     Dosage: 80 MILLIGRAM
     Route: 065
     Dates: start: 201407, end: 201410
  34. VALSARTAN 1A PHARMA [Suspect]
     Active Substance: VALSARTAN
     Dosage: 160/ 12.5 MILLIGRAM
     Route: 065
     Dates: start: 201407, end: 201410
  35. BACLOFEN. [Suspect]
     Active Substance: BACLOFEN
     Dosage: UNK 8 DAYS
     Route: 048
     Dates: start: 20170704, end: 20170712
  36. BACLOFEN. [Suspect]
     Active Substance: BACLOFEN
     Dosage: 200 MICROGRAM/20 MG VIA PUMP
     Route: 058
  37. DIPIDOLOR [Suspect]
     Active Substance: PIRITRAMIDE
     Indication: PAIN IN EXTREMITY
  38. VALSARTAN HEXAL COMP [Suspect]
     Active Substance: HYDROCHLOROTHIAZIDE\VALSARTAN
     Dosage: UNK
     Route: 065
     Dates: start: 201407, end: 201407
  39. VALSARTAN HEXAL COMP [Suspect]
     Active Substance: HYDROCHLOROTHIAZIDE\VALSARTAN
     Dosage: UNK
     Route: 065
     Dates: start: 20150122
  40. VINCRISTINE [VINCRISTINE SULFATE] [Suspect]
     Active Substance: VINCRISTINE SULFATE
     Indication: HODGKIN^S DISEASE
     Dosage: 2 MILLIGRAM (ABSOLUTE, DAY 8)
     Route: 065
     Dates: start: 20160120
  41. VALSACOR COMP [Suspect]
     Active Substance: HYDROCHLOROTHIAZIDE\VALSARTAN
     Dosage: 160 MG / 12.5 MG
     Route: 065
     Dates: start: 201704, end: 2017
  42. LYRICA [Concomitant]
     Active Substance: PREGABALIN
     Dosage: 150 UNK, QD (1X 150, 1X)
     Route: 065
     Dates: start: 2016
  43. CITALOPRAM [Concomitant]
     Active Substance: CITALOPRAM HYDROBROMIDE
     Dosage: 20 UNK, QD (1X 20, 1X DAILY (MORNING))
     Route: 065
  44. PALLADON [Concomitant]
     Active Substance: HYDROMORPHONE
     Indication: PRODUCT USED FOR UNKNOWN INDICATION
     Dosage: 8 MILLIGRAM, BID
     Route: 065
     Dates: start: 201511
  45. LEVOTHYROXINE. [Concomitant]
     Active Substance: LEVOTHYROXINE
     Indication: PRODUCT USED FOR UNKNOWN INDICATION
     Dosage: UNK
     Route: 065
  46. NEULASTA [Suspect]
     Active Substance: PEGFILGRASTIM
     Indication: PROPHYLAXIS
     Dosage: UNK
     Route: 058
     Dates: start: 20151212, end: 20151212
  47. PREDNISOLONE. [Suspect]
     Active Substance: PREDNISOLONE
     Dosage: 40 MILLIGRAM/SQ. METER (80 MG), DAY 1 ? 14, DAILY
     Route: 065
     Dates: start: 20160126, end: 20160126
  48. BACLOFEN. [Suspect]
     Active Substance: BACLOFEN
     Dosage: 200 MICROGRAM VIA PUMP
     Route: 058
  49. DIPIDOLOR [Suspect]
     Active Substance: PIRITRAMIDE
     Indication: BACK PAIN
     Dosage: 15 MILLIGRAM
     Route: 065
     Dates: start: 20150608
  50. CYCLOPHOSPHAMIDE. [Suspect]
     Active Substance: CYCLOPHOSPHAMIDE
     Indication: HODGKIN^S DISEASE
     Dosage: 750 MILLIGRAM/SQ. METER
     Route: 065
     Dates: start: 20160113
  51. VALSARTAN HEXAL COMP [Suspect]
     Active Substance: HYDROCHLOROTHIAZIDE\VALSARTAN
     Dosage: UNK
     Route: 065
     Dates: start: 20140707
  52. VALSARTAN HEXAL COMP [Suspect]
     Active Substance: HYDROCHLOROTHIAZIDE\VALSARTAN
     Dosage: 1 DOSAGE FORM, QD (1 DF, QD (IN MORNING, 1?0?0))
     Route: 065
     Dates: start: 201407, end: 201407
  53. VALSARTAN HEXAL COMP [Suspect]
     Active Substance: HYDROCHLOROTHIAZIDE\VALSARTAN
     Dosage: 1 DOSAGE FORM, QD (1 DF, QD (IN MORNING, 1?0?0))
     Route: 065
     Dates: start: 201407, end: 201704
  54. VALSACOR COMP [Suspect]
     Active Substance: HYDROCHLOROTHIAZIDE\VALSARTAN
     Dosage: UNK
     Route: 065
     Dates: start: 20170725
  55. LYRICA [Concomitant]
     Active Substance: PREGABALIN
     Dosage: 75 UNK, QD (1X 75, 1X DAILY (EVENING))
     Route: 065
     Dates: start: 2016
  56. LYRICA [Concomitant]
     Active Substance: PREGABALIN
     Dosage: 150 UNK, QD (1X 150, 1X)
     Route: 065
     Dates: start: 2016
  57. MOTILIUM [Concomitant]
     Active Substance: DOMPERIDONE
     Dosage: 10 MILLIGRAM, TID (10 MG, ONCE IN THE MORNING, NOON AND EVENING))
     Route: 048
  58. TRANXILIUM [Concomitant]
     Active Substance: CLORAZEPATE DIPOTASSIUM
     Indication: PRODUCT USED FOR UNKNOWN INDICATION
     Dosage: 15 MILLIGRAM, QD (1X 15 MG, QD, 1X DAILY (EVENING OR NIGHT))
     Route: 065
  59. VALSARTAN. [Concomitant]
     Active Substance: VALSARTAN
     Indication: HYPERTENSION
     Dosage: 160 MG / 12.5 MG
     Route: 016
     Dates: start: 201301
  60. VALSARTAN. [Concomitant]
     Active Substance: VALSARTAN
     Dosage: UNK
     Route: 016
     Dates: start: 20130124
  61. PANTOZOL [Concomitant]
     Active Substance: PANTOPRAZOLE SODIUM
     Dosage: 40 UNK, QD (1X 40, 1X DAILY (EVENING))
     Route: 016
  62. IBUPROFEN. [Suspect]
     Active Substance: IBUPROFEN
     Indication: PRODUCT USED FOR UNKNOWN INDICATION
     Route: 065
  63. BACLOFEN. [Suspect]
     Active Substance: BACLOFEN
     Dosage: UNK (25/20 MG IN MORNING, 20 MG IN NOON, 20 MG IN EVENING)
     Route: 065
  64. BACLOFEN. [Suspect]
     Active Substance: BACLOFEN
     Dosage: 200 MICROGRAM/20 MG VIA PUMP
     Route: 058
  65. VALSARTAN HEXAL COMP [Suspect]
     Active Substance: HYDROCHLOROTHIAZIDE\VALSARTAN
     Dosage: UNK
     Route: 065
     Dates: start: 20141014
  66. VALSARTAN HEXAL COMP [Suspect]
     Active Substance: HYDROCHLOROTHIAZIDE\VALSARTAN
     Dosage: 1 DOSAGE FORM, QD ((IN MORNING, 1?0?0))
     Route: 065
     Dates: start: 201410, end: 201704
  67. VALSARTAN HEXAL COMP [Suspect]
     Active Substance: HYDROCHLOROTHIAZIDE\VALSARTAN
     Dosage: UNK
     Route: 065
     Dates: start: 20170112
  68. DOXORUBICINE [DOXORUBICIN] [Suspect]
     Active Substance: DOXORUBICIN
     Dosage: 25 MILLIGRAM/SQ. METER (DAY 1)
     Route: 065
     Dates: start: 20160113
  69. VINBLASTINE [Suspect]
     Active Substance: VINBLASTINE
     Indication: HODGKIN^S DISEASE
     Dosage: 6 MILLIGRAM/SQ. METER (DAY 1 AND DAY 15)
     Route: 065
     Dates: start: 20151027, end: 201512
  70. VINBLASTINE [Suspect]
     Active Substance: VINBLASTINE
     Dosage: UNK
     Route: 065
  71. GRANOCYTE [Suspect]
     Active Substance: LENOGRASTIM
     Indication: PROPHYLAXIS
     Dosage: UNK
     Route: 065
     Dates: start: 201511
  72. PARACETAMOL [Suspect]
     Active Substance: ACETAMINOPHEN
     Route: 065
  73. DIAZEPAM. [Suspect]
     Active Substance: DIAZEPAM
     Indication: BACK PAIN
     Dosage: 2.5 UNK, QD (1X 2.5, QD, 1X DAILY (EVENING))
     Route: 065
  74. LYRICA [Concomitant]
     Active Substance: PREGABALIN
     Dosage: 150 UNK, BID (MORNING AND EVENING))
     Route: 065
  75. MOVICOL [Concomitant]
     Active Substance: POLYETHYLENE GLYCOL 3350\POTASSIUM CHLORIDE\SODIUM BICARBONATE\SODIUM CHLORIDE
     Dosage: 1 DOSAGE FORM, AS NECESSARY (1 DF, SACHET, 1X IF NEEDED)
     Route: 065
  76. CITALOPRAM [Concomitant]
     Active Substance: CITALOPRAM HYDROBROMIDE
     Indication: PRODUCT USED FOR UNKNOWN INDICATION
     Dosage: 20 UNK, QD (1X 20, 1X DAILY (MORNING))
     Route: 065
  77. IBUPROFEN. [Suspect]
     Active Substance: IBUPROFEN
     Route: 065
  78. BACLOFEN. [Suspect]
     Active Substance: BACLOFEN
     Indication: PRODUCT USED FOR UNKNOWN INDICATION
     Dosage: 200 MICROGRAM VIA PUMP
     Route: 058
     Dates: start: 2015
  79. BACLOFEN. [Suspect]
     Active Substance: BACLOFEN
     Dosage: 80 MICROGRAM, QD VIA PUMP
     Route: 065
     Dates: start: 2015
  80. BACLOFEN. [Suspect]
     Active Substance: BACLOFEN
     Dosage: 80 MICROGRAM, QD VIA PUMP
     Route: 065
     Dates: start: 2015
  81. PROCARBAZINE [Suspect]
     Active Substance: PROCARBAZINE
     Indication: HODGKIN^S DISEASE
     Dosage: 100 MILLIGRAM/SQ. METER, BID (DAY 1?7, DAILY)
     Route: 065
     Dates: start: 20190113, end: 20190119
  82. ETOPOSIDE. [Suspect]
     Active Substance: ETOPOSIDE
     Indication: HODGKIN^S DISEASE
     Dosage: 100 MILLIGRAM/SQ. METER (DAY 1?3)
     Route: 065
     Dates: start: 20160113
  83. DIAZEPAM. [Suspect]
     Active Substance: DIAZEPAM
     Dosage: 2.5 UNK, QD (1X 2.5, QD, 1X DAILY (MORNING))
     Route: 065
  84. DIAZEPAM. [Suspect]
     Active Substance: DIAZEPAM
     Dosage: 10 MILLIGRAM (10 MG1X 2.5, QD, 1X DAILY (EVENING)10 MG1X 2.5, QD), 1X DAILY (MORNING)
     Route: 065
  85. LYRICA [Concomitant]
     Active Substance: PREGABALIN
     Dosage: 150 UNK, BID (MORNING AND EVENING))
     Route: 065
     Dates: start: 2016
  86. LYRICA [Concomitant]
     Active Substance: PREGABALIN
     Dosage: 75 UNK, QD (1X 75, 1X DAILY (EVENING))
     Route: 065
  87. MORPHINE [Concomitant]
     Active Substance: MORPHINE
     Indication: PAIN
     Dosage: UNK VIA PUMP
     Route: 065
  88. COTRIMOX FORTE [Concomitant]
     Active Substance: SULFAMETHOXAZOLE\TRIMETHOPRIM
     Indication: PNEUMONIA
  89. TRANXILIUM [Concomitant]
     Active Substance: CLORAZEPATE DIPOTASSIUM
     Dosage: 10 MILLIGRAM, QD (1X 10 MG, QD, 1X DAILY (MORNING))
     Route: 065
  90. VALSARTAN. [Concomitant]
     Active Substance: VALSARTAN
     Dosage: UNK
     Route: 016
  91. PANTOZOL [Concomitant]
     Active Substance: PANTOPRAZOLE SODIUM
     Indication: PRODUCT USED FOR UNKNOWN INDICATION
     Dosage: 40 UNK, QD (1X 40, 1X DAILY (MORNING))
     Route: 016
  92. PANTOZOL [Concomitant]
     Active Substance: PANTOPRAZOLE SODIUM
     Dosage: 40 MILLIGRAM, QD
     Route: 065
  93. VALSARTAN 1A PHARMA [Suspect]
     Active Substance: VALSARTAN
     Dosage: UNK
     Route: 065
     Dates: start: 20141014
  94. VALSARTAN 1A PHARMA [Suspect]
     Active Substance: VALSARTAN
     Dosage: UNK
     Route: 065
     Dates: start: 201410, end: 201704
  95. VALSARTAN 1A PHARMA [Suspect]
     Active Substance: VALSARTAN
     Dosage: UNK
     Route: 065
     Dates: start: 20150415
  96. BACLOFEN. [Suspect]
     Active Substance: BACLOFEN
     Dosage: 200 MICROGRAM/20 MG VIA PUMP (1?1?1)
     Route: 058
  97. VALSARTAN HEXAL COMP [Suspect]
     Active Substance: HYDROCHLOROTHIAZIDE\VALSARTAN
     Indication: HYPERTENSION
     Dosage: UNK
     Route: 065
     Dates: start: 20140414, end: 201407
  98. VALSARTAN HEXAL COMP [Suspect]
     Active Substance: HYDROCHLOROTHIAZIDE\VALSARTAN
     Dosage: UNK
     Route: 065
     Dates: start: 20150415
  99. VALSARTAN HEXAL COMP [Suspect]
     Active Substance: HYDROCHLOROTHIAZIDE\VALSARTAN
     Dosage: UNK
     Route: 065
     Dates: start: 20160427
  100. GRANOCYTE [Suspect]
     Active Substance: LENOGRASTIM
     Indication: NEUTROPENIA
     Dosage: UNK
     Route: 065
     Dates: start: 201511, end: 201511
  101. GRANOCYTE [Suspect]
     Active Substance: LENOGRASTIM
     Dosage: 34 UNK, QD (1X 34, QD, 1X DAILY)
     Route: 065
     Dates: start: 20160203, end: 20160205
  102. VALSACOR COMP [Suspect]
     Active Substance: HYDROCHLOROTHIAZIDE\VALSARTAN
     Indication: HYPERTENSION
     Dosage: UNK
     Route: 065
     Dates: start: 20170411
  103. DIAZEPAM. [Suspect]
     Active Substance: DIAZEPAM
     Indication: PAIN IN EXTREMITY
     Dosage: 10 MILLIGRAM
     Route: 065
     Dates: start: 20150608
  104. MORPHINE [Concomitant]
     Active Substance: MORPHINE
     Dosage: UNK VIA PUMP
     Route: 065
  105. TRANXILIUM [Concomitant]
     Active Substance: CLORAZEPATE DIPOTASSIUM
     Dosage: 10 MILLIGRAM, BID (1X 10 MG, BID, 2X DAILY (MORNING AND EVENING))
     Route: 065
  106. PANTOZOL [Concomitant]
     Active Substance: PANTOPRAZOLE SODIUM
     Dosage: 40 UNK, QD (1X 40, 1X DAILY (EVENING))
     Route: 016
  107. CLONIDINE. [Concomitant]
     Active Substance: CLONIDINE
     Dosage: UNK UNK, BID (BID (1X0.5 MG))
     Route: 065

REACTIONS (44)
  - Basal ganglion degeneration [Unknown]
  - Uterine enlargement [Unknown]
  - Nausea [Recovering/Resolving]
  - Haematoma [Unknown]
  - Obesity [Unknown]
  - Dizziness [Recovering/Resolving]
  - Drug abuse [Unknown]
  - Vomiting [Recovering/Resolving]
  - Spinal cord disorder [Unknown]
  - Sepsis [Unknown]
  - Pyrexia [Recovered/Resolved]
  - Respiratory failure [Unknown]
  - Monoplegia [Unknown]
  - Dysaesthesia [Recovering/Resolving]
  - Myalgia [Unknown]
  - Bone pain [Unknown]
  - Fatigue [Unknown]
  - Arthralgia [Unknown]
  - Tissue infiltration [Unknown]
  - Sleep disorder [Unknown]
  - Viral infection [Recovered/Resolved]
  - Dysphagia [Unknown]
  - Headache [Unknown]
  - Inflammation [Recovering/Resolving]
  - Neurological decompensation [Recovering/Resolving]
  - Lung disorder [Unknown]
  - Inguinal hernia [Unknown]
  - Sleep apnoea syndrome [Unknown]
  - Anaesthesia [Recovering/Resolving]
  - Klebsiella infection [Unknown]
  - Pulmonary congestion [Unknown]
  - Hypothyroidism [Unknown]
  - Candida infection [Unknown]
  - Abdominal tenderness [Unknown]
  - Psychogenic seizure [Unknown]
  - Fall [Recovered/Resolved]
  - Loss of consciousness [Unknown]
  - Hypoaesthesia [Recovering/Resolving]
  - Tachycardia [Unknown]
  - Hyperhidrosis [Unknown]
  - Tremor [Unknown]
  - Speech disorder [Recovering/Resolving]
  - Hepatic steatosis [Unknown]
  - Renal cyst [Unknown]

NARRATIVE: CASE EVENT DATE: 201512
